FAERS Safety Report 21430234 (Version 1)
Quarter: 2022Q4

REPORT INFORMATION
  Report Type: Spontaneous
  Country: JP (occurrence: JP)
  Receive Date: 20221009
  Receipt Date: 20221009
  Transmission Date: 20230112
  Serious: Yes (Death)
  Sender: FDA-Public Use
  Company Number: JP-TEVA-2022-JP-2082344

PATIENT

DRUGS (3)
  1. ETOPOSIDE [Suspect]
     Active Substance: ETOPOSIDE
     Indication: Haemophagocytic lymphohistiocytosis
     Dosage: ON WEEKS 1-2; SCHEDULED TO BE FOLLOWED BY 150 MG/M2 ONCE A WEEK ON WEEKS 3-8
     Route: 042
  2. DEXAMETHASONE [Suspect]
     Active Substance: DEXAMETHASONE
     Indication: Haemophagocytic lymphohistiocytosis
     Dosage: 10 MG/M2 DAILY; ON WEEKS 1-2; SCHEDULED TO BE FOLLOWED BY 5 MG/M2/DAY FOR WEEKS 3-4, 2.5 MG/M2/DAY F
     Route: 065
  3. CYCLOSPORINE [Suspect]
     Active Substance: CYCLOSPORINE
     Indication: Haemophagocytic lymphohistiocytosis
     Dosage: BODY WEIGHT BASED TWICE A WEEK DOSAGE FOR A TARGET TROUGH LEVEL OF 200 MICROGRAM/L.
     Route: 065

REACTIONS (3)
  - Lung disorder [Fatal]
  - Renal disorder [Fatal]
  - Fungal infection [Fatal]
